FAERS Safety Report 10736201 (Version 1)
Quarter: 2015Q1

REPORT INFORMATION
  Report Type: Spontaneous
  Country: SG (occurrence: None)
  Receive Date: 20150121
  Receipt Date: 20150121
  Transmission Date: 20150721
  Serious: Yes (Other)
  Sender: FDA-Public Use
  Company Number: SG-DEXPHARM-20150005

PATIENT
  Age: 32 Year
  Sex: Female

DRUGS (1)
  1. CHLORHEXIDINE-ALCOHOL ACTIVE SUBSTANCES: 70 % ALCOHOL, 0.5 % CHLORHEXIDINE [Suspect]
     Active Substance: ALCOHOL\CHLORHEXIDINE GLUCONATE
     Indication: PREOPERATIVE CARE

REACTIONS (2)
  - Burns third degree [None]
  - Wrong technique in drug usage process [None]
